FAERS Safety Report 17521088 (Version 1)
Quarter: 2020Q1

REPORT INFORMATION
  Report Type: Spontaneous
  Country: US (occurrence: US)
  Receive Date: 20200302
  Receipt Date: 20200302
  Transmission Date: 20200409
  Serious: No
  Sender: FDA-Public Use
  Company Number: None

PATIENT
  Age: 46 Year
  Sex: Male
  Weight: 119 kg

DRUGS (1)
  1. ROSUVASTATIN (ROSUVASTATIN CA 20MG TAB) [Suspect]
     Active Substance: ROSUVASTATIN
     Indication: HYPERLIPIDAEMIA
     Dosage: ?          OTHER FREQUENCY:HS;?
     Route: 048
     Dates: start: 20181113, end: 20191122

REACTIONS (2)
  - Blood creatine phosphokinase increased [None]
  - Myalgia [None]

NARRATIVE: CASE EVENT DATE: 20200121
